FAERS Safety Report 9887713 (Version 1)
Quarter: 2014Q1

REPORT INFORMATION
  Report Type: Spontaneous
  Country: US (occurrence: US)
  Receive Date: 20140211
  Receipt Date: 20140211
  Transmission Date: 20141002
  Serious: No
  Sender: FDA-Public Use
  Company Number: US-009507513-1402USA003831

PATIENT
  Age: 15 Year
  Sex: Female
  Weight: 54.88 kg

DRUGS (1)
  1. NEXPLANON [Suspect]
     Indication: CONTRACEPTION
     Dosage: ONE ROD INSERTED, EVERY THREE YEARS
     Route: 059
     Dates: start: 20130711

REACTIONS (3)
  - Feeling abnormal [Unknown]
  - Implant site bruising [Unknown]
  - Device breakage [Unknown]
